FAERS Safety Report 7806656-5 (Version None)
Quarter: 2011Q4

REPORT INFORMATION
  Report Type: 
  Country: None (occurrence: None)
  Receive Date: 20111005
  Receipt Date: 20110923
  Transmission Date: 20120403
  Serious: Yes (Hospitalization)
  Sender: FDA-Public Use
  Company Number: 2010SP045971

PATIENT
  Age: 43 Year
  Sex: Female

DRUGS (9)
  1. AMBIEN [Concomitant]
  2. TYLENOL-500 [Concomitant]
  3. QUININE [Concomitant]
  4. INTRON A [Suspect]
     Indication: HEPATITIS C
     Dosage: 10 MG;QW;
     Dates: start: 20060101, end: 20060101
  5. SPIRONOLACTONE [Concomitant]
  6. PEGASYS [Suspect]
     Indication: PRODUCT USED FOR UNKNOWN INDICATION
  7. URSODIOL [Concomitant]
  8. FLUOXETINE [Concomitant]
  9. CIPROFLOXACIN [Concomitant]

REACTIONS (13)
  - MALAISE [None]
  - IMPAIRED WORK ABILITY [None]
  - DEPRESSION [None]
  - ANXIETY [None]
  - PROCEDURAL PAIN [None]
  - HAEMATURIA TRAUMATIC [None]
  - CHRONIC HEPATIC FAILURE [None]
  - RENAL DISORDER [None]
  - FLUID RETENTION [None]
  - THROMBOCYTOPENIA [None]
  - CARDIAC MURMUR [None]
  - ASCITES [None]
  - MENTAL DISORDER [None]
